FAERS Safety Report 23731630 (Version 1)
Quarter: 2024Q2

REPORT INFORMATION
  Report Type: Report from Study
  Country: GT (occurrence: GT)
  Receive Date: 20240411
  Receipt Date: 20240411
  Transmission Date: 20240716
  Serious: Yes (Death)
  Sender: FDA-Public Use
  Company Number: GT-BAYER-2024A052638

PATIENT
  Age: 88 Year
  Sex: Male

DRUGS (1)
  1. FINERENONE [Suspect]
     Active Substance: FINERENONE
     Indication: Chronic kidney disease
     Dosage: 20 MG
     Dates: end: 20240312

REACTIONS (1)
  - Death [Fatal]

NARRATIVE: CASE EVENT DATE: 20240312
